FAERS Safety Report 7960135-3 (Version None)
Quarter: 2011Q4

REPORT INFORMATION
  Report Type: 
  Country: None (occurrence: None)
  Receive Date: 20111206
  Receipt Date: 20111130
  Transmission Date: 20120403
  Serious: Yes (Hospitalization)
  Sender: FDA-Public Use
  Company Number: PHEH2011US009923

PATIENT
  Sex: Male

DRUGS (4)
  1. PROZAC [Suspect]
     Indication: DEPRESSION
  2. PROVIGIL [Concomitant]
     Indication: ANTIDEPRESSANT THERAPY
     Dosage: UNK UKN, UNK
  3. GILENYA [Suspect]
     Indication: RELAPSING-REMITTING MULTIPLE SCLEROSIS
     Dosage: 0.5 MG, QD
     Route: 048
     Dates: start: 20110406
  4. SSRI [Concomitant]
     Indication: ANTIDEPRESSANT THERAPY
     Dosage: UNK UKN, UNK

REACTIONS (5)
  - CONTUSION [None]
  - AGITATION [None]
  - GRAND MAL CONVULSION [None]
  - SOMNOLENCE [None]
  - LETHARGY [None]
